FAERS Safety Report 5986011-3 (Version None)
Quarter: 2008Q4

REPORT INFORMATION
  Report Type: 
  Country: None (occurrence: None)
  Receive Date: 20081209
  Receipt Date: 20081201
  Transmission Date: 20090506
  Serious: Yes (Other)
  Sender: FDA-Public Use
  Company Number: US-JNJFOC-20081201742

PATIENT
  Age: 11 Month
  Sex: Female
  Weight: 9.07 kg

DRUGS (2)
  1. POLYCITRA K [Suspect]
     Indication: PH URINE
     Dosage: 1/2 PACK WITH MEALS
     Route: 048
  2. GABAPENTIN [Concomitant]
     Indication: CONVULSION
     Route: 048

REACTIONS (1)
  - CONVULSION [None]
